FAERS Safety Report 13541868 (Version 8)
Quarter: 2017Q4

REPORT INFORMATION
  Report Type: Report from Study
  Country: US (occurrence: US)
  Receive Date: 20170512
  Receipt Date: 20171214
  Transmission Date: 20180320
  Serious: No
  Sender: FDA-Public Use
  Company Number: US-ALEXION PHARMACEUTICALS INC.-A201704997

PATIENT
  Sex: Male

DRUGS (3)
  1. STRENSIQ [Suspect]
     Active Substance: ASFOTASE ALFA
     Dosage: UNK
     Route: 058
  2. STRENSIQ [Suspect]
     Active Substance: ASFOTASE ALFA
     Dosage: UNK
     Route: 065
  3. STRENSIQ [Suspect]
     Active Substance: ASFOTASE ALFA
     Indication: HYPOPHOSPHATASIA
     Dosage: 2 MG/KG, TIW
     Route: 058

REACTIONS (13)
  - Skin disorder [Unknown]
  - Bone pain [Unknown]
  - Injection site pain [Unknown]
  - Wrong technique in device usage process [Unknown]
  - Injection site swelling [Unknown]
  - Drug ineffective [Unknown]
  - Disturbance in attention [Unknown]
  - Anger [Unknown]
  - Injection site bruising [Unknown]
  - Fatigue [Unknown]
  - Injection site erythema [Unknown]
  - Irritability [Unknown]
  - Injection site induration [Unknown]

NARRATIVE: CASE EVENT DATE: 20170510
